FAERS Safety Report 7998067-7 (Version None)
Quarter: 2011Q4

REPORT INFORMATION
  Report Type: 
  Country: None (occurrence: None)
  Receive Date: 20111221
  Receipt Date: 20101230
  Transmission Date: 20120403
  Serious: No
  Sender: FDA-Public Use
  Company Number: US-GLAXOSMITHKLINE-A0902043A

PATIENT
  Age: 61 Year
  Sex: Female

DRUGS (8)
  1. SINGULAIR [Concomitant]
  2. METOPROLOL TARTRATE [Concomitant]
  3. LOVAZA [Suspect]
     Indication: BLOOD TRIGLYCERIDES INCREASED
     Dosage: 1CAP TWICE PER DAY
     Route: 048
     Dates: start: 20090101, end: 20101226
  4. CRESTOR [Concomitant]
  5. SYNTHROID [Concomitant]
  6. MAXZIDE [Concomitant]
  7. ESTRADIOL [Concomitant]
  8. CLARINEX [Concomitant]

REACTIONS (1)
  - DRY THROAT [None]
